FAERS Safety Report 25770051 (Version 3)
Quarter: 2025Q4

REPORT INFORMATION
  Report Type: Spontaneous
  Country: US (occurrence: US)
  Receive Date: 20250907
  Receipt Date: 20251005
  Transmission Date: 20260118
  Serious: No
  Sender: SANOFI AVENTIS
  Company Number: US-SANOFI-02635071

PATIENT
  Age: 72 Year
  Sex: Female

DRUGS (1)
  1. LANTUS SOLOSTAR [Suspect]
     Active Substance: INSULIN GLARGINE
     Indication: Diabetes mellitus
     Dosage: UNK
     Dates: start: 2005

REACTIONS (4)
  - Injection site pain [Unknown]
  - Incorrect product administration duration [Unknown]
  - Wrong technique in device usage process [Unknown]
  - Device operational issue [Unknown]

NARRATIVE: CASE EVENT DATE: 20250101
